FAERS Safety Report 9447701 (Version 1)
Quarter: 2013Q3

REPORT INFORMATION
  Report Type: Spontaneous
  Country: US (occurrence: None)
  Receive Date: 20130807
  Receipt Date: 20130807
  Transmission Date: 20140515
  Serious: Yes (Life-Threatening, Hospitalization)
  Sender: FDA-Public Use
  Company Number: None

PATIENT
  Age: 55 Year
  Sex: Male
  Weight: 68.4 kg

DRUGS (10)
  1. ABELCET [Suspect]
     Indication: PNEUMONIA CRYPTOCOCCAL
     Dosage: 330MG Q24 IV
     Route: 042
     Dates: start: 20130722, end: 20130726
  2. ABELCET [Suspect]
     Indication: SEPSIS
     Dosage: 330MG Q24 IV
     Route: 042
     Dates: start: 20130722, end: 20130726
  3. CHLORHEXIDINE [Concomitant]
  4. NIMBEX [Concomitant]
  5. DIPHENHYDRAMINE [Concomitant]
  6. FENTANYL [Concomitant]
  7. PROPOFOL [Concomitant]
  8. MULTIVITAMIN [Concomitant]
  9. SALINE [Concomitant]
  10. BACTRIM [Concomitant]

REACTIONS (2)
  - Dyspnoea [None]
  - Hypoxia [None]
